FAERS Safety Report 16184142 (Version 1)
Quarter: 2019Q2

REPORT INFORMATION
  Report Type: Spontaneous
  Country: US (occurrence: US)
  Receive Date: 20190410
  Receipt Date: 20190410
  Transmission Date: 20190711
  Serious: Yes (Disabling)
  Sender: FDA-Public Use
  Company Number: None

PATIENT
  Age: 54 Year
  Sex: Male
  Weight: 162 kg

DRUGS (4)
  1. ZOSYN GENERIC [Suspect]
     Active Substance: PIPERACILLIN SODIUM\TAZOBACTAM SODIUM
     Dosage: ?          OTHER FREQUENCY:Q6H;?
     Route: 042
     Dates: start: 20190116, end: 20190118
  2. VANCOMYCIN [Suspect]
     Active Substance: VANCOMYCIN
     Dosage: ?          OTHER FREQUENCY:Q8H;?
     Route: 042
     Dates: start: 20190116, end: 20190117
  3. LISINOPRIL. [Concomitant]
     Active Substance: LISINOPRIL
     Dates: start: 20190116
  4. HYDROCHLOROTHIAZIDE. [Concomitant]
     Active Substance: HYDROCHLOROTHIAZIDE
     Dates: start: 20190116

REACTIONS (5)
  - Atrial fibrillation [None]
  - Dialysis [None]
  - Urine output decreased [None]
  - Pericardial effusion [None]
  - Acute kidney injury [None]

NARRATIVE: CASE EVENT DATE: 20190118
